FAERS Safety Report 6276439-9 (Version None)
Quarter: 2009Q3

REPORT INFORMATION
  Report Type: 
  Country: None (occurrence: None)
  Receive Date: 20090720
  Receipt Date: 20080923
  Transmission Date: 20100115
  Serious: Yes (Other)
  Sender: FDA-Public Use
  Company Number: USA-2008-0035076

PATIENT

DRUGS (1)
  1. MS CONTIN TABLETS (MORPHINE SULFATE) PROLONGED-RELEASE TABLET [Suspect]
     Indication: DRUG USE FOR UNKNOWN INDICATION

REACTIONS (1)
  - CONVULSION [None]
